FAERS Safety Report 9618022 (Version 1)
Quarter: 2013Q4

REPORT INFORMATION
  Report Type: Spontaneous
  Country: US (occurrence: US)
  Receive Date: 20131011
  Receipt Date: 20131011
  Transmission Date: 20140711
  Serious: Yes (Other)
  Sender: FDA-Public Use
  Company Number: US-ASTRAZENECA-2013SE73999

PATIENT
  Age: 56 Year
  Sex: Male
  Weight: 73 kg

DRUGS (5)
  1. CRESTOR [Suspect]
     Indication: BLOOD CHOLESTEROL ABNORMAL
     Route: 048
     Dates: start: 201306
  2. BRILINTA [Suspect]
     Indication: STENT PLACEMENT
     Route: 048
     Dates: start: 201306
  3. ASPIRIN [Concomitant]
     Indication: CARDIAC DISORDER
     Route: 048
  4. MAGNESIUM [Concomitant]
     Route: 048
  5. UNKNOWN BLOOD PRESSURE MED [Concomitant]
     Indication: BLOOD PRESSURE
     Dosage: NOT REPORTED UNK
     Route: 048

REACTIONS (3)
  - Haematuria [Unknown]
  - Joint swelling [Unknown]
  - Dyspnoea [Unknown]
